FAERS Safety Report 17755248 (Version 8)
Quarter: 2020Q4

REPORT INFORMATION
  Report Type: Spontaneous
  Country: US (occurrence: US)
  Receive Date: 20200507
  Receipt Date: 20201119
  Transmission Date: 20210113
  Serious: Yes (Other)
  Sender: FDA-Public Use
  Company Number: US-BEH-2020117050

PATIENT
  Age: 35 Year
  Sex: Female
  Weight: 86.17 kg

DRUGS (7)
  1. HAEGARDA [Suspect]
     Active Substance: HUMAN C1-ESTERASE INHIBITOR
     Dosage: 4391 INTERNATIONAL UNIT/8.8ML
     Route: 058
     Dates: end: 20201017
  2. HAEGARDA [Suspect]
     Active Substance: HUMAN C1-ESTERASE INHIBITOR
     Indication: PROPHYLAXIS
     Dosage: 5582 INTERNATIONAL UNIT, BIW
     Route: 058
  3. FIRAZYR [Concomitant]
     Active Substance: ICATIBANT ACETATE
     Indication: HEREDITARY ANGIOEDEMA
     Dosage: 30 MILLIGRAM / 3 ML (2-3 TIMES DAILY)
     Route: 065
  4. HAEGARDA [Suspect]
     Active Substance: HUMAN C1-ESTERASE INHIBITOR
     Indication: HEREDITARY ANGIOEDEMA WITH C1 ESTERASE INHIBITOR DEFICIENCY
     Dosage: 5500 INTERNATIONAL UNIT, (EVERY 3 DAYS) BIW
     Route: 058
     Dates: start: 20200430
  5. FIRAZYR [Concomitant]
     Active Substance: ICATIBANT ACETATE
     Dosage: UNK, 3 TIMES DAILY
     Route: 065
  6. HAEGARDA [Suspect]
     Active Substance: HUMAN C1-ESTERASE INHIBITOR
     Indication: PROPHYLAXIS
  7. HAEGARDA [Suspect]
     Active Substance: HUMAN C1-ESTERASE INHIBITOR
     Indication: HEREDITARY ANGIOEDEMA
     Dosage: 2000 UNIT NOT REPORTED
     Route: 058

REACTIONS (13)
  - Abdominal pain [Recovering/Resolving]
  - Vomiting [Recovering/Resolving]
  - No adverse event [Unknown]
  - Hereditary angioedema [Recovering/Resolving]
  - Off label use [Unknown]
  - Nausea [Recovering/Resolving]
  - Nausea [Recovering/Resolving]
  - Infusion site pain [Recovering/Resolving]
  - Abdominal tenderness [Recovering/Resolving]
  - Drug ineffective [Not Recovered/Not Resolved]
  - Vomiting [Recovering/Resolving]
  - Hereditary angioedema [Not Recovered/Not Resolved]
  - Therapy cessation [Unknown]

NARRATIVE: CASE EVENT DATE: 20200430
